FAERS Safety Report 7149640-X (Version None)
Quarter: 2010Q4

REPORT INFORMATION
  Report Type: 
  Country: None (occurrence: None)
  Receive Date: 20101209
  Receipt Date: 20101129
  Transmission Date: 20110411
  Serious: Yes (Hospitalization)
  Sender: FDA-Public Use
  Company Number: AU-GILEAD-2010-0034023

PATIENT
  Sex: Male
  Weight: 96.3 kg

DRUGS (11)
  1. EMTRICITABINE/TENOFOVIR DISOPROXIL FUMARATE [Suspect]
     Indication: HIV INFECTION
     Route: 048
     Dates: start: 20101112
  2. RITONAVIR [Suspect]
     Indication: HIV INFECTION
     Route: 048
     Dates: start: 20101112, end: 20101128
  3. ATAZANAVIR [Suspect]
     Indication: HIV INFECTION
     Route: 048
     Dates: start: 20101112
  4. NEXIUM [Concomitant]
     Indication: GASTROOESOPHAGEAL REFLUX DISEASE
     Dates: start: 20101112
  5. PRINIVIL [Concomitant]
     Indication: HYPERTENSION
     Dates: start: 20080819
  6. PRAVASTATIN [Concomitant]
     Indication: HYPERCHOLESTEROLAEMIA
     Dates: start: 20081206
  7. ALLEGRON [Concomitant]
     Indication: MIGRAINE
     Dates: start: 20081205
  8. FAMVIR [Concomitant]
     Indication: HERPES SIMPLEX
     Dates: start: 20080520
  9. MINIMS PREDNISOLONE [Concomitant]
     Indication: EYE INFECTION
     Dates: start: 20080101
  10. STILNOX [Concomitant]
     Indication: INSOMNIA
     Dates: start: 20071219
  11. XANAX [Concomitant]
     Indication: ANXIETY
     Dates: start: 20080509

REACTIONS (2)
  - NEPHRITIS [None]
  - SEPSIS [None]
